FAERS Safety Report 5548639-4 (Version None)
Quarter: 2007Q4

REPORT INFORMATION
  Report Type: 
  Country: None (occurrence: None)
  Receive Date: 20071206
  Receipt Date: 20071121
  Transmission Date: 20080405
  Serious: Yes (Other)
  Sender: FDA-Public Use
  Company Number: 164455ISR

PATIENT
  Age: 60 Year
  Sex: Female

DRUGS (2)
  1. FLUOROURACIL [Suspect]
     Dosage: 2030 MG/M2;
  2. FOLINIC ACID [Suspect]
     Dosage: 500 MG/M2;

REACTIONS (1)
  - OEDEMA PERIPHERAL [None]
